FAERS Safety Report 18549676 (Version 1)
Quarter: 2020Q4

REPORT INFORMATION
  Report Type: Spontaneous
  Country: US (occurrence: US)
  Receive Date: 20201126
  Receipt Date: 20201126
  Transmission Date: 20210114
  Serious: No
  Sender: FDA-Public Use
  Company Number: US-HORIZON-2020HZN01635

PATIENT
  Age: 2 Year
  Sex: Male

DRUGS (1)
  1. PROCYSBI [Suspect]
     Active Substance: CYSTEAMINE BITARTRATE
     Indication: CYSTINOSIS
     Dosage: TAKE 400 MG (ONE 25 MG CAPSULE, ONE 300 MG PACKET, AND ONE 75 MG PACKET) EVERY 12 HOURS. TOTAL DA...

REACTIONS (1)
  - Nausea [Unknown]
